FAERS Safety Report 8574768-7 (Version None)
Quarter: 2012Q3

REPORT INFORMATION
  Report Type: 
  Country: None (occurrence: None)
  Receive Date: 20120807
  Receipt Date: 20120801
  Transmission Date: 20120928
  Serious: Yes (Hospitalization, Disabling, Other)
  Sender: FDA-Public Use
  Company Number: US-009507513-2009SP031151

PATIENT

DRUGS (2)
  1. NUVARING [Suspect]
     Indication: CONTRACEPTION
     Dates: start: 20080401, end: 20090501
  2. NUVARING [Suspect]
     Indication: MENSTRUATION IRREGULAR

REACTIONS (4)
  - AORTIC VALVE SCLEROSIS [None]
  - BREAST CALCIFICATIONS [None]
  - PULMONARY HYPERTENSION [None]
  - PULMONARY EMBOLISM [None]
